FAERS Safety Report 5803415-X (Version None)
Quarter: 2008Q3

REPORT INFORMATION
  Report Type: 
  Country: None (occurrence: None)
  Receive Date: 20080708
  Receipt Date: 20080703
  Transmission Date: 20090109
  Serious: Yes (Other)
  Sender: FDA-Public Use
  Company Number: JP-AVENTIS-200811916JP

PATIENT
  Age: 73 Year
  Sex: Female

DRUGS (4)
  1. AMARYL [Suspect]
     Route: 048
     Dates: start: 20080614
  2. ARICEPT [Concomitant]
  3. MAGLAX [Concomitant]
  4. RISPERDAL [Concomitant]

REACTIONS (1)
  - PEMPHIGUS [None]
